FAERS Safety Report 7282985-1 (Version None)
Quarter: 2011Q1

REPORT INFORMATION
  Report Type: 
  Country: None (occurrence: None)
  Receive Date: 20110209
  Receipt Date: 20110128
  Transmission Date: 20110831
  Serious: Yes (Hospitalization, Other)
  Sender: FDA-Public Use
  Company Number: JP-JNJFOC-20110104604

PATIENT
  Sex: Male
  Weight: 60 kg

DRUGS (9)
  1. REMICADE [Suspect]
     Route: 042
  2. REMICADE [Suspect]
     Dosage: FIRST INFUSION
     Route: 042
  3. REMICADE [Suspect]
     Dosage: 15TH INFUSION
     Route: 042
  4. PARIET [Concomitant]
     Indication: REFLUX OESOPHAGITIS
     Route: 048
  5. REMICADE [Suspect]
     Route: 042
  6. METHOTREXATE [Concomitant]
     Indication: RHEUMATOID ARTHRITIS
     Route: 048
  7. OLMETEC [Concomitant]
     Indication: HYPERTENSION
     Route: 048
  8. REMICADE [Suspect]
     Indication: RHEUMATOID ARTHRITIS
     Dosage: 12 INFUSIONS ON UNSPECIFIED DATES
     Route: 042
  9. ISCOTIN [Concomitant]
     Indication: ANTIBIOTIC PROPHYLAXIS
     Route: 048

REACTIONS (6)
  - ANAPHYLACTIC SHOCK [None]
  - TREMOR [None]
  - NAUSEA [None]
  - VOMITING [None]
  - INFUSION RELATED REACTION [None]
  - HYDRONEPHROSIS [None]
